FAERS Safety Report 17546556 (Version 2)
Quarter: 2021Q2

REPORT INFORMATION
  Report Type: Spontaneous
  Country: CA (occurrence: CA)
  Receive Date: 20200316
  Receipt Date: 20210427
  Transmission Date: 20210716
  Serious: Yes (Other)
  Sender: FDA-Public Use
  Company Number: CA-ROCHE-2565425

PATIENT
  Age: 44 Year
  Sex: Female

DRUGS (1)
  1. XOLAIR [Suspect]
     Active Substance: OMALIZUMAB
     Indication: ASTHMA
     Route: 058
     Dates: start: 20080116

REACTIONS (5)
  - Maternal exposure during pregnancy [Unknown]
  - Nasal congestion [Unknown]
  - Pyrexia [Unknown]
  - Haemorrhage in pregnancy [Unknown]
  - Productive cough [Unknown]

NARRATIVE: CASE EVENT DATE: 20191227
